FAERS Safety Report 20751357 (Version 1)
Quarter: 2022Q2

REPORT INFORMATION
  Report Type: Spontaneous
  Country: US (occurrence: US)
  Receive Date: 20220426
  Receipt Date: 20220426
  Transmission Date: 20220721
  Serious: No
  Sender: FDA-Public Use
  Company Number: US-PFIZER INC-2021711773

PATIENT
  Age: 47 Year
  Sex: Female
  Weight: 86.18 kg

DRUGS (2)
  1. TAPAZOLE [Suspect]
     Active Substance: METHIMAZOLE
     Indication: Hyperthyroidism
     Dosage: 10 MG, 2X/DAY, IN THE MORNING AT 7 AM
     Dates: start: 20210611
  2. ATENOLOL [Concomitant]
     Active Substance: ATENOLOL
     Indication: Hyperthyroidism
     Dosage: 25 MG

REACTIONS (5)
  - Inflammation [Not Recovered/Not Resolved]
  - Arthralgia [Not Recovered/Not Resolved]
  - Pain in extremity [Unknown]
  - Gait disturbance [Unknown]
  - Neck pain [Unknown]

NARRATIVE: CASE EVENT DATE: 20210611
